FAERS Safety Report 6997678-5 (Version None)
Quarter: 2010Q3

REPORT INFORMATION
  Report Type: 
  Country: None (occurrence: None)
  Receive Date: 20100918
  Receipt Date: 20091106
  Transmission Date: 20110219
  Serious: No
  Sender: FDA-Public Use
  Company Number: US-WYE-H12088109

PATIENT
  Sex: Female
  Weight: 86.26 kg

DRUGS (5)
  1. PRISTIQ [Suspect]
     Indication: DEPRESSION
     Route: 048
     Dates: start: 20091028
  2. SIMVASTATIN [Concomitant]
  3. PAXIL [Concomitant]
  4. DOXEPIN HCL [Concomitant]
  5. ALPRAZOLAM [Concomitant]

REACTIONS (2)
  - EYE SWELLING [None]
  - NAUSEA [None]
